FAERS Safety Report 6856722-6 (Version None)
Quarter: 2010Q2

REPORT INFORMATION
  Report Type: 
  Country: None (occurrence: None)
  Receive Date: 20100630
  Receipt Date: 20100405
  Transmission Date: 20101027
  Serious: No
  Sender: FDA-Public Use
  Company Number: 1000013004

PATIENT
  Age: 59 Year
  Sex: Male

DRUGS (5)
  1. BYSTOLIC [Suspect]
     Indication: HYPERTENSION
     Dosage: 5 MG (5  MG, 1 IN 1 D), ORAL
     Route: 048
     Dates: start: 20100331
  2. AVALIDE [Concomitant]
  3. AMLODIPINE [Concomitant]
  4. METFORMIN [Concomitant]
  5. JANUVIA [Concomitant]

REACTIONS (1)
  - RASH MACULAR [None]
